FAERS Safety Report 9112459 (Version 1)
Quarter: 2013Q1

REPORT INFORMATION
  Report Type: Spontaneous
  Country: US (occurrence: US)
  Receive Date: 20130211
  Receipt Date: 20130211
  Transmission Date: 20140127
  Serious: Yes (Hospitalization)
  Sender: FDA-Public Use
  Company Number: US-BAYER-2013-017213

PATIENT
  Age: 35 Year
  Sex: Female

DRUGS (6)
  1. YAZ [Suspect]
  2. YASMIN [Suspect]
  3. PANTOPRAZOLE [Concomitant]
     Route: 048
  4. TRICOR [Concomitant]
     Route: 048
  5. MERIDIA [Concomitant]
     Route: 048
  6. LEVOTHYROXINE [Concomitant]
     Route: 048

REACTIONS (1)
  - Deep vein thrombosis [None]
